FAERS Safety Report 9878179 (Version 1)
Quarter: 2014Q1

REPORT INFORMATION
  Report Type: Spontaneous
  Country: IE (occurrence: IE)
  Receive Date: 20140206
  Receipt Date: 20140206
  Transmission Date: 20141002
  Serious: Yes (Other)
  Sender: FDA-Public Use
  Company Number: IE-PFIZER INC-2014031553

PATIENT
  Sex: 0

DRUGS (1)
  1. EFEXOR XL [Suspect]
     Dosage: UNK

REACTIONS (1)
  - Gastrointestinal disorder [Unknown]
